FAERS Safety Report 5834645-9 (Version None)
Quarter: 2008Q3

REPORT INFORMATION
  Report Type: 
  Country: None (occurrence: None)
  Receive Date: 20080801
  Receipt Date: 20080716
  Transmission Date: 20090109
  Serious: Yes (Hospitalization)
  Sender: FDA-Public Use
  Company Number: 2008AL008505

PATIENT
  Age: 89 Year
  Sex: Female
  Weight: 52.1637 kg

DRUGS (5)
  1. DIGOXIN [Suspect]
     Indication: ATRIAL FIBRILLATION
     Dosage: 0.125 MG E/O DAY PO
     Route: 048
     Dates: start: 20080201
  2. DIOVAN [Concomitant]
  3. FUROSEMIDE [Concomitant]
  4. LIPITOR [Concomitant]
  5. DILITAZEM [Concomitant]

REACTIONS (4)
  - ASTHENIA [None]
  - DIZZINESS [None]
  - HEART RATE DECREASED [None]
  - THERAPEUTIC AGENT TOXICITY [None]
